FAERS Safety Report 20056804 (Version 2)
Quarter: 2021Q4

REPORT INFORMATION
  Report Type: Spontaneous
  Country: JP (occurrence: JP)
  Receive Date: 20211111
  Receipt Date: 20211124
  Transmission Date: 20220303
  Serious: Yes (Hospitalization, Other)
  Sender: FDA-Public Use
  Company Number: JP-ASTELLAS-2021JP021694

PATIENT
  Age: 86 Year
  Sex: Female
  Weight: 40 kg

DRUGS (10)
  1. PROGRAF [Suspect]
     Active Substance: TACROLIMUS
     Indication: Rheumatoid arthritis
     Dosage: 2 MG, ONCE DAILY, AFTER DINNER
     Route: 048
  2. CALCIUM POLYSTYRENE SULFONATE [Suspect]
     Active Substance: CALCIUM POLYSTYRENE SULFONATE
     Indication: Renal disorder
     Dosage: UNK UNK, THRICE DAILY
     Route: 048
  3. PREDONINE [Concomitant]
     Active Substance: PREDNISOLONE
     Indication: Rheumatoid arthritis
     Route: 048
  4. CARVEDILOL [Concomitant]
     Active Substance: CARVEDILOL
     Indication: Cardiac failure
     Dosage: UNK UNK, UNKNOWN FREQ.
     Route: 048
  5. HERBESSER [Concomitant]
     Active Substance: DILTIAZEM HYDROCHLORIDE
     Indication: Cardiac failure
     Dosage: UNK UNK, UNKNOWN FREQ.
     Route: 048
  6. OLMESARTAN [Concomitant]
     Active Substance: OLMESARTAN
     Indication: Blood pressure management
     Dosage: UNK UNK, UNKNOWN FREQ.
     Route: 048
  7. FUDOSTEINE [Concomitant]
     Active Substance: FUDOSTEINE
     Indication: Cough
     Dosage: UNK UNK, UNKNOWN FREQ.
     Route: 048
  8. FUDOSTEINE [Concomitant]
     Active Substance: FUDOSTEINE
     Indication: Productive cough
  9. ERYTHROCIN [Concomitant]
     Active Substance: ERYTHROMYCIN LACTOBIONATE
     Indication: Cough
     Route: 048
  10. ERYTHROCIN [Concomitant]
     Active Substance: ERYTHROMYCIN LACTOBIONATE
     Indication: Productive cough

REACTIONS (10)
  - Immobile [Unknown]
  - Cardiac failure [Unknown]
  - Pneumonia [Unknown]
  - Dyspnoea [Unknown]
  - Eating disorder [Unknown]
  - Pleurisy [Unknown]
  - Cough [Unknown]
  - Productive cough [Unknown]
  - Creatinine renal clearance decreased [Unknown]
  - Hypertension [Unknown]
